FAERS Safety Report 5714684-9 (Version None)
Quarter: 2008Q2

REPORT INFORMATION
  Report Type: 
  Country: None (occurrence: None)
  Receive Date: 20080423
  Receipt Date: 20080411
  Transmission Date: 20081010
  Serious: Yes (Life-Threatening)
  Sender: FDA-Public Use
  Company Number: JP-ROCHE-481141

PATIENT
  Sex: Male
  Weight: 75 kg

DRUGS (2)
  1. CAPECITABINE [Suspect]
     Indication: GASTRIC CANCER
     Dosage: FREQUENCY PER PROTOCOL REPORTED AS TWICE PER DAY ON DAY 1 TO DAY 14 EVERY 3 WEEKS.
     Route: 048
     Dates: start: 20070109, end: 20070201
  2. CISPLATIN [Suspect]
     Indication: GASTRIC CANCER
     Dosage: 80 MG/M2 ON DAY ONE.
     Route: 042
     Dates: start: 20070109, end: 20070130

REACTIONS (1)
  - SEPTIC SHOCK [None]
